FAERS Safety Report 16308467 (Version 1)
Quarter: 2019Q2

REPORT INFORMATION
  Report Type: Spontaneous
  Country: RO (occurrence: RO)
  Receive Date: 20190514
  Receipt Date: 20190514
  Transmission Date: 20190711
  Serious: Yes (Hospitalization)
  Sender: FDA-Public Use
  Company Number: RO-ROCHE-2316270

PATIENT
  Sex: Female

DRUGS (6)
  1. AVASTIN [Suspect]
     Active Substance: BEVACIZUMAB
     Indication: RECTAL ADENOCARCINOMA
     Dosage: NO
     Route: 065
     Dates: start: 2017, end: 201807
  2. AFLIBERCEPT [Concomitant]
     Active Substance: AFLIBERCEPT
  3. FOLINIC ACID [Concomitant]
     Active Substance: LEUCOVORIN
     Dosage: UNKNOWN
     Route: 065
     Dates: start: 20170101
  4. FLUOROURACILE [Concomitant]
     Active Substance: FLUOROURACIL
     Indication: RECTAL ADENOCARCINOMA
     Dosage: UNKNOWN
     Route: 065
     Dates: start: 20170101
  5. IRINOTECAN [Concomitant]
     Active Substance: IRINOTECAN
  6. OXALIPLATIN. [Concomitant]
     Active Substance: OXALIPLATIN
     Indication: RECTAL ADENOCARCINOMA
     Dosage: NO
     Route: 065
     Dates: start: 20170101

REACTIONS (1)
  - Stomal hernia [Recovered/Resolved]

NARRATIVE: CASE EVENT DATE: 201805
